FAERS Safety Report 20974141 (Version 1)
Quarter: 2022Q2

REPORT INFORMATION
  Report Type: Other
  Country: ES (occurrence: None)
  Receive Date: 20220617
  Receipt Date: 20220617
  Transmission Date: 20220721
  Serious: Yes (Other)
  Sender: FDA-Public Use
  Company Number: ES-ROCHE-3115969

PATIENT
  Age: 65 Year
  Sex: Female

DRUGS (1)
  1. TOCILIZUMAB [Suspect]
     Active Substance: TOCILIZUMAB
     Indication: Giant cell arteritis
     Route: 065

REACTIONS (4)
  - Intestinal obstruction [Unknown]
  - Lower gastrointestinal haemorrhage [Unknown]
  - Colitis ischaemic [Unknown]
  - Faecaloma [Unknown]
